FAERS Safety Report 6031003-1 (Version None)
Quarter: 2009Q1

REPORT INFORMATION
  Report Type: 
  Country: None (occurrence: None)
  Receive Date: 20090108
  Receipt Date: 20081230
  Transmission Date: 20090719
  Serious: Yes (Other)
  Sender: FDA-Public Use
  Company Number: GB-BAXTER-2009BH000009

PATIENT
  Age: 7 Year
  Sex: Male

DRUGS (6)
  1. IFOSFAMIDE [Suspect]
     Indication: RHABDOMYOSARCOMA
     Route: 065
  2. ETOPOSIDE [Suspect]
     Indication: RHABDOMYOSARCOMA
     Route: 065
  3. DACTINOMYCIN [Suspect]
     Indication: RHABDOMYOSARCOMA
     Route: 042
  4. EPIRUBICIN HYDROCHLORIDE [Suspect]
     Indication: RHABDOMYOSARCOMA
     Route: 065
  5. CARBOPLATIN [Suspect]
     Indication: RHABDOMYOSARCOMA
     Route: 065
  6. VINCRISTINE SULFATE [Suspect]
     Indication: RHABDOMYOSARCOMA
     Route: 065

REACTIONS (1)
  - THYROID CANCER [None]
